FAERS Safety Report 6207982-6 (Version None)
Quarter: 2009Q2

REPORT INFORMATION
  Report Type: 
  Country: None (occurrence: None)
  Receive Date: 20090529
  Receipt Date: 20090211
  Transmission Date: 20091009
  Serious: No
  Sender: FDA-Public Use
  Company Number: A0768232A

PATIENT
  Age: 58 Year
  Sex: Female

DRUGS (18)
  1. VENTOLIN [Suspect]
     Indication: BRONCHOSPASM
     Dosage: 2PUFF SIX TIMES PER DAY
     Route: 055
  2. PREDNISONE [Suspect]
  3. XOPENEX [Concomitant]
  4. ATROVENT [Concomitant]
  5. LASIX [Concomitant]
  6. ACTOS [Concomitant]
  7. ANTIBIOTIC [Concomitant]
  8. CLARITIN [Concomitant]
  9. NEXIUM [Concomitant]
  10. ASPIRIN [Concomitant]
  11. FLEXERIL [Concomitant]
  12. VICODIN [Concomitant]
  13. BENADRYL [Concomitant]
  14. XANAX [Concomitant]
  15. FORADIL [Concomitant]
  16. LOTION [Concomitant]
  17. OXYGEN [Concomitant]
  18. EPIPEN [Concomitant]

REACTIONS (9)
  - ABNORMAL DREAMS [None]
  - BLOOD PRESSURE INCREASED [None]
  - HEADACHE [None]
  - HEART RATE INCREASED [None]
  - RASH [None]
  - SWELLING [None]
  - THROAT TIGHTNESS [None]
  - TREMOR [None]
  - URTICARIA [None]
